FAERS Safety Report 20743915 (Version 1)
Quarter: 2022Q2

REPORT INFORMATION
  Report Type: Spontaneous
  Country: US (occurrence: None)
  Receive Date: 20220422
  Receipt Date: 20220422
  Transmission Date: 20220721
  Serious: Yes (Other)
  Sender: FDA-Public Use
  Company Number: None

PATIENT
  Age: 69 Year
  Sex: Male
  Weight: 104.33 kg

DRUGS (11)
  1. LUPRON [Suspect]
     Active Substance: LEUPROLIDE ACETATE
     Indication: Prostate cancer
     Dosage: OTHER FREQUENCY : ONCE Q 3 MONTHS;?
     Route: 042
  2. FLOMAX [Concomitant]
  3. PROSCAR [Concomitant]
  4. XTANDI [Concomitant]
  5. HYDROCODONE-ACETAMINOPHEN [Concomitant]
  6. LEVAQUIN [Concomitant]
  7. MORPHINE [Concomitant]
  8. ESOMEPRAZOLE [Concomitant]
  9. AMBIEN [Concomitant]
  10. CASODEX [Concomitant]
  11. PREDNISONE [Concomitant]

REACTIONS (1)
  - Disease progression [None]
